FAERS Safety Report 8366961-3 (Version None)
Quarter: 2012Q2

REPORT INFORMATION
  Report Type: 
  Country: None (occurrence: None)
  Receive Date: 20120517
  Receipt Date: 20120511
  Transmission Date: 20120825
  Serious: Yes (Hospitalization)
  Sender: FDA-Public Use
  Company Number: PHHY2012KR039868

PATIENT
  Sex: Male
  Weight: 73 kg

DRUGS (2)
  1. AFINITOR [Suspect]
     Indication: RENAL CELL CARCINOMA
     Dates: start: 20111013, end: 20111104
  2. AFINITOR [Suspect]
     Dosage: UNK
     Dates: start: 20120107, end: 20120114

REACTIONS (1)
  - AZOTAEMIA [None]
